FAERS Safety Report 12523236 (Version 4)
Quarter: 2017Q1

REPORT INFORMATION
  Report Type: Report from Study
  Country: JP (occurrence: JP)
  Receive Date: 20160702
  Receipt Date: 20170131
  Transmission Date: 20170428
  Serious: Yes (Life-Threatening, Hospitalization, Other)
  Sender: FDA-Public Use
  Company Number: JP-AMGEN-JPNCT2016086229

PATIENT
  Age: 61 Year
  Sex: Male
  Weight: 58 kg

DRUGS (14)
  1. 5-FU                               /00098801/ [Suspect]
     Active Substance: FLUOROURACIL
     Indication: METASTASES TO LIVER
     Dosage: 2400 MG/M2, Q2WEEKS
     Route: 041
     Dates: start: 20160329, end: 20160412
  2. 5-FU                               /00098801/ [Suspect]
     Active Substance: FLUOROURACIL
     Dosage: 400 MG/M2, Q2WK
     Route: 040
     Dates: start: 20160506, end: 20160616
  3. 5-FU                               /00098801/ [Suspect]
     Active Substance: FLUOROURACIL
     Dosage: 2400 MG/M2, Q2WEEKS
     Route: 041
     Dates: start: 20160506, end: 20160616
  4. CALCIUM LEVOFOLINATE [Concomitant]
     Active Substance: LEVOLEUCOVORIN CALCIUM
     Indication: METASTASES TO LIVER
     Dosage: 200 MG/M2, Q2WEEKS
     Route: 041
     Dates: start: 20160506, end: 20160616
  5. CALONAL [Concomitant]
     Active Substance: ACETAMINOPHEN
     Indication: PAIN
     Dosage: 500 MG, UNK
     Route: 048
     Dates: start: 20160520
  6. OXALIPLATIN. [Suspect]
     Active Substance: OXALIPLATIN
     Indication: METASTASES TO LIVER
     Dosage: 85 MG/M2, Q2WEEKS
     Route: 041
     Dates: start: 20160506, end: 20160616
  7. CALONAL [Concomitant]
     Active Substance: ACETAMINOPHEN
     Indication: PYREXIA
     Dosage: UNK
  8. CALCIUM LEVOFOLINATE [Concomitant]
     Active Substance: LEVOLEUCOVORIN CALCIUM
     Indication: COLON CANCER
     Dosage: 200 MG/M2, Q2WEEKS
     Route: 041
     Dates: start: 20160329, end: 20160412
  9. PANITUMUMAB [Suspect]
     Active Substance: PANITUMUMAB
     Indication: COLON CANCER
     Dosage: 6 MG/KG, Q2WK
     Route: 041
     Dates: start: 20160329, end: 20160412
  10. 5-FU                               /00098801/ [Suspect]
     Active Substance: FLUOROURACIL
     Indication: COLON CANCER
     Dosage: 400 MG/M2, Q2WK
     Route: 040
     Dates: start: 20160329, end: 20160412
  11. ETODOLAC. [Suspect]
     Active Substance: ETODOLAC
     Indication: ABDOMINAL PAIN UPPER
     Dosage: 200 MG, BID
     Route: 048
     Dates: start: 20160512, end: 201606
  12. TAKECAB [Concomitant]
     Active Substance: VONOPRAZAN FUMURATE
     Dosage: 20 MG, QD
     Route: 048
     Dates: start: 20160617
  13. PANITUMUMAB [Suspect]
     Active Substance: PANITUMUMAB
     Indication: METASTASES TO LIVER
     Dosage: 6 MG/KG, Q2WK
     Route: 041
     Dates: start: 20160506, end: 20160616
  14. OXALIPLATIN. [Suspect]
     Active Substance: OXALIPLATIN
     Indication: COLON CANCER
     Dosage: 85 MG/M2, Q2WEEKS
     Route: 041
     Dates: start: 20160329, end: 20160412

REACTIONS (12)
  - Febrile neutropenia [Recovered/Resolved]
  - Nausea [Not Recovered/Not Resolved]
  - Duodenal ulcer [Recovering/Resolving]
  - Cancer pain [Not Recovered/Not Resolved]
  - Epistaxis [Recovered/Resolved]
  - Malaise [Not Recovered/Not Resolved]
  - Rash [Recovering/Resolving]
  - Decreased appetite [Not Recovered/Not Resolved]
  - Diarrhoea [Recovered/Resolved]
  - Neuropathy peripheral [Not Recovered/Not Resolved]
  - Pneumonia [Recovered/Resolved]
  - Stomatitis [Recovered/Resolved]

NARRATIVE: CASE EVENT DATE: 20160405
